FAERS Safety Report 7368625-1 (Version None)
Quarter: 2011Q1

REPORT INFORMATION
  Report Type: 
  Country: None (occurrence: None)
  Receive Date: 20110308
  Receipt Date: 20110303
  Transmission Date: 20110831
  Serious: Yes (Life-Threatening, Hospitalization)
  Sender: FDA-Public Use
  Company Number: 2011SP005119

PATIENT
  Age: 16 Year
  Sex: Female
  Weight: 51 kg

DRUGS (1)
  1. MARVELON (DESOGESTREL/ETHINYLESTRADIOL /00570801/) [Suspect]
     Indication: MENSTRUATION IRREGULAR
     Dosage: 1 DF;QD;PO
     Route: 048
     Dates: start: 20101029, end: 20110101

REACTIONS (10)
  - CEREBRAL VENOUS THROMBOSIS [None]
  - NUCLEAR MAGNETIC RESONANCE IMAGING BRAIN ABNORMAL [None]
  - HEADACHE [None]
  - THROMBOSIS [None]
  - VENOUS THROMBOSIS [None]
  - CONVULSION [None]
  - PYREXIA [None]
  - MALAISE [None]
  - DECREASED APPETITE [None]
  - NAUSEA [None]
